FAERS Safety Report 4533918-X (Version None)
Quarter: 2004Q4

REPORT INFORMATION
  Report Type: 
  Country: None (occurrence: None)
  Receive Date: 20041210
  Receipt Date: 20040802
  Transmission Date: 20050328
  Serious: Yes (Other)
  Sender: FDA-Public Use
  Company Number: A03200402544

PATIENT
  Age: 74 Year
  Sex: Female

DRUGS (8)
  1. ELOXATIN [Suspect]
     Indication: COLON CANCER
     Dosage: 197 MG Q2W - INTRAVENOUS NOS
     Route: 042
     Dates: start: 20040720, end: 20040720
  2. FLUOROURACIL [Concomitant]
  3. LEUCOVORIN [Concomitant]
  4. DOLASETRON MESILATE [Concomitant]
  5. DEXAMETHASONE [Concomitant]
  6. CALCIUM GLUCONATE [Concomitant]
  7. MAGNESIUM [Concomitant]
  8. BEVACIZUMAB [Concomitant]

REACTIONS (4)
  - BLOOD PRESSURE INCREASED [None]
  - HEADACHE [None]
  - OXYGEN SATURATION ABNORMAL [None]
  - WHEEZING [None]
